FAERS Safety Report 4778538-7 (Version None)
Quarter: 2005Q3

REPORT INFORMATION
  Report Type: 
  Country: None (occurrence: None)
  Receive Date: 20050926
  Receipt Date: 20050817
  Transmission Date: 20060218
  Serious: No
  Sender: FDA-Public Use
  Company Number: US-BRISTOL-MYERS SQUIBB COMPANY-13082771

PATIENT
  Sex: Male
  Weight: 83 kg

DRUGS (5)
  1. REYATAZ [Suspect]
     Indication: HIV INFECTION
     Dosage: DOSE REDUCED TO 150 MG.
     Dates: start: 20040601
  2. SUSTIVA [Suspect]
  3. VIDEX [Concomitant]
  4. VIREAD [Concomitant]
  5. NORVIR [Concomitant]

REACTIONS (2)
  - DIZZINESS [None]
  - PARAESTHESIA [None]
